FAERS Safety Report 23608105 (Version 1)
Quarter: 2024Q1

REPORT INFORMATION
  Report Type: Spontaneous
  Country: NL (occurrence: NL)
  Receive Date: 20240307
  Receipt Date: 20240307
  Transmission Date: 20240410
  Serious: Yes (Hospitalization)
  Sender: FDA-Public Use
  Company Number: None

PATIENT
  Age: 75 Year
  Sex: Female
  Weight: 65 kg

DRUGS (1)
  1. BROMFENAC SODIUM [Suspect]
     Active Substance: BROMFENAC SODIUM
     Indication: Cataract operation
     Dosage: TWICE A DAY
     Route: 065
     Dates: start: 20240201, end: 20240219

REACTIONS (3)
  - Corneal erosion [Not Recovered/Not Resolved]
  - Corneal perforation [Not Recovered/Not Resolved]
  - Visual impairment [Not Recovered/Not Resolved]
